FAERS Safety Report 6894178-8 (Version None)
Quarter: 2010Q3

REPORT INFORMATION
  Report Type: 
  Country: None (occurrence: None)
  Receive Date: 20100728
  Receipt Date: 20100714
  Transmission Date: 20110219
  Serious: Yes (Other)
  Sender: FDA-Public Use
  Company Number: 2010AP001365

PATIENT
  Age: 14 Year
  Sex: Female

DRUGS (3)
  1. MYCOPHENOLATE MOFETIL [Suspect]
     Indication: AUTOIMMUNE HEPATITIS
  2. PREDNISOLONE [Suspect]
     Indication: AUTOIMMUNE HEPATITIS
  3. RITUXIMAB (RITUXIMAB) [Suspect]
     Indication: THROMBOTIC THROMBOCYTOPENIC PURPURA
     Dosage: 375 MG/M2;QW

REACTIONS (9)
  - HEADACHE [None]
  - HEPATIC STEATOSIS [None]
  - NEUROLOGICAL SYMPTOM [None]
  - PYREXIA [None]
  - RASH [None]
  - SERUM SICKNESS [None]
  - THROMBOCYTOPENIA [None]
  - TROPONIN T INCREASED [None]
  - VISION BLURRED [None]
